FAERS Safety Report 4475908-1 (Version None)
Quarter: 2004Q4

REPORT INFORMATION
  Report Type: 
  Country: None (occurrence: None)
  Receive Date: 20041012
  Receipt Date: 20040930
  Transmission Date: 20050328
  Serious: Yes (Hospitalization)
  Sender: FDA-Public Use
  Company Number: 2003188577US

PATIENT
  Age: 26 Year
  Sex: Female

DRUGS (3)
  1. DOSTINEX (CABERGOLINE)TABLET 0.25-.5 MG [Suspect]
     Indication: PITUITARY TUMOUR BENIGN
     Dosage: 0.5 MG, WEEKLY
     Dates: start: 19980513, end: 19980601
  2. DOSTINEX (CABERGOLINE)TABLET 0.25-.5 MG [Suspect]
     Indication: PITUITARY TUMOUR BENIGN
     Dosage: 0.5 MG, WEEKLY
     Dates: start: 19990301, end: 19990101
  3. DOSTINEX REGIMEN #2 [Suspect]
     Dosage: 0.5 MG, WEEKLY
     Dates: start: 19990301, end: 19990101

REACTIONS (6)
  - ABORTION SPONTANEOUS [None]
  - COMPLICATIONS OF MATERNAL EXPOSURE TO THERAPEUTIC DRUGS [None]
  - ECTOPIC PREGNANCY [None]
  - MATERNAL DRUGS AFFECTING FOETUS [None]
  - OVARIAN CYST [None]
  - VOMITING [None]
